FAERS Safety Report 9435242 (Version 5)
Quarter: 2013Q4

REPORT INFORMATION
  Report Type: Spontaneous
  Country: US (occurrence: US)
  Receive Date: 20130801
  Receipt Date: 20131029
  Transmission Date: 20140711
  Serious: Yes (Hospitalization, Other)
  Sender: FDA-Public Use
  Company Number: US-PFIZER INC-2013221731

PATIENT
  Age: 63 Year
  Sex: Female
  Weight: 97.96 kg

DRUGS (15)
  1. XELJANZ [Suspect]
     Indication: RHEUMATOID ARTHRITIS
     Dosage: 5 MG, 2X/DAY
     Route: 048
     Dates: start: 20130313, end: 20130404
  2. XELJANZ [Suspect]
     Dosage: 5 MG, 1X/DAY (1 PILL DAILY AM FOR ONE WEEK)
     Route: 048
     Dates: start: 20130426, end: 20130502
  3. XELJANZ [Suspect]
     Dosage: 5 MG, 2X/DAY
     Route: 048
     Dates: start: 20130503
  4. METHOTREXATE SODIUM [Suspect]
     Dosage: 20 MG, WEEKLY
     Dates: start: 2006, end: 201304
  5. AZULFIDINE EN [Suspect]
     Dosage: 1500 MG, 2X/DAY
     Dates: start: 2006
  6. PLAQUENIL [Suspect]
     Dosage: 200 MG, 2X/DAY
     Dates: start: 2006
  7. PLAQUENIL [Suspect]
     Dosage: 400 MG, 2X/DAY
     Route: 048
  8. CALCIUM [Concomitant]
     Dosage: UNK
  9. TENORMIN [Concomitant]
     Dosage: 50 MG, 2X/DAY
     Route: 048
  10. COLACE [Concomitant]
     Dosage: 200 MG, DAILY (DAILY, PRN)
     Route: 048
  11. NORCO [Concomitant]
     Dosage: 5-325 MG PER TABLET 1 TABLET, Q8H PRN
     Route: 048
  12. SYNTHROID [Concomitant]
     Dosage: 300 UG, (QAM AC)
     Route: 048
  13. LEVOTHROID [Concomitant]
     Dosage: 300 UG, (QAM AC)
     Route: 048
  14. SENOKOT [Concomitant]
     Dosage: 8.6 MG, DAILY (PRN)
     Route: 048
  15. AZULFIDINE [Concomitant]
     Dosage: 1500 MG, 2X/DAY
     Route: 048

REACTIONS (50)
  - Diffuse large B-cell lymphoma [Unknown]
  - Central nervous system lymphoma [Unknown]
  - Lymphoma [Unknown]
  - Glioblastoma multiforme [Unknown]
  - Haemolytic anaemia [Unknown]
  - Cognitive disorder [Unknown]
  - Balance disorder [Unknown]
  - Fall [Not Recovered/Not Resolved]
  - Vision blurred [Unknown]
  - Neuropathy peripheral [Not Recovered/Not Resolved]
  - Peripheral motor neuropathy [Not Recovered/Not Resolved]
  - Peripheral sensory neuropathy [Not Recovered/Not Resolved]
  - Asthenia [Not Recovered/Not Resolved]
  - Muscular weakness [Unknown]
  - Erythema [Recovered/Resolved]
  - Flushing [Recovered/Resolved]
  - Rash [Recovered/Resolved]
  - Blister [Recovered/Resolved]
  - Urticaria [Recovered/Resolved]
  - Pruritus [Unknown]
  - Upper respiratory tract infection [Recovered/Resolved]
  - Sinusitis [Unknown]
  - Conjunctivitis [Unknown]
  - Paraesthesia [Unknown]
  - Nerve conduction studies abnormal [Unknown]
  - Back pain [Unknown]
  - Contusion [Unknown]
  - Hypoaesthesia [Unknown]
  - Radicular pain [Unknown]
  - Dry mouth [Unknown]
  - Insomnia [Unknown]
  - Stress [Unknown]
  - Condition aggravated [Unknown]
  - Amnesia [Unknown]
  - Urinary incontinence [Unknown]
  - Blood glucose increased [Unknown]
  - Lip disorder [Unknown]
  - Hypokalaemia [Unknown]
  - Hypothyroidism [Unknown]
  - Arthralgia [Unknown]
  - Pruritus [Unknown]
  - Muscle spasms [Unknown]
  - Stomatitis [Unknown]
  - Nasal discomfort [Unknown]
  - Alopecia [Unknown]
  - Musculoskeletal stiffness [Unknown]
  - Low turnover osteopathy [Unknown]
  - Nausea [Unknown]
  - Vomiting [Unknown]
  - Diarrhoea [Unknown]
